FAERS Safety Report 15935018 (Version 1)
Quarter: 2019Q1

REPORT INFORMATION
  Report Type: Spontaneous
  Country: US (occurrence: US)
  Receive Date: 20190207
  Receipt Date: 20190207
  Transmission Date: 20190417
  Serious: Yes (Life-Threatening, Hospitalization)
  Sender: FDA-Public Use
  Company Number: US-MYLANLABS-2019M1010906

PATIENT
  Age: 15 Year
  Sex: Male

DRUGS (2)
  1. VILAZODONE [Suspect]
     Active Substance: VILAZODONE
     Indication: PRODUCT USED FOR UNKNOWN INDICATION
     Dosage: 30 TABLETS
     Route: 048
  2. BUPROPION. [Suspect]
     Active Substance: BUPROPION
     Indication: PRODUCT USED FOR UNKNOWN INDICATION
     Dosage: 60 TABLETS
     Route: 048

REACTIONS (7)
  - Intentional overdose [Recovering/Resolving]
  - Serotonin syndrome [Unknown]
  - Hypotension [Unknown]
  - Hypoxia [Recovered/Resolved]
  - Partial seizures [Unknown]
  - Amnesia [Recovering/Resolving]
  - Cerebral infarction [Unknown]
